FAERS Safety Report 7471396-1 (Version None)
Quarter: 2011Q2

REPORT INFORMATION
  Report Type: 
  Country: None (occurrence: None)
  Receive Date: 20110510
  Receipt Date: 20110429
  Transmission Date: 20111010
  Serious: Yes (Hospitalization, Other)
  Sender: FDA-Public Use
  Company Number: US-BAYER-2011-036846

PATIENT
  Sex: Female
  Weight: 47 kg

DRUGS (3)
  1. REBIF [Suspect]
     Dosage: 8.8 ?G, TID
     Route: 058
     Dates: start: 20110320
  2. REBIF [Suspect]
     Indication: MULTIPLE SCLEROSIS
     Dosage: 44 ?G, TIW
     Route: 058
     Dates: start: 20101011, end: 20110201
  3. CIPRO [Suspect]
     Indication: URINARY TRACT INFECTION
     Dosage: UNK, FOR THREE OR FOUR DAYS
     Route: 048
     Dates: start: 20110201, end: 20110101

REACTIONS (3)
  - DIARRHOEA [None]
  - COLITIS [None]
  - ABDOMINAL PAIN [None]
